FAERS Safety Report 5337009-X (Version None)
Quarter: 2007Q2

REPORT INFORMATION
  Report Type: 
  Country: None (occurrence: None)
  Receive Date: 20070523
  Receipt Date: 20070511
  Transmission Date: 20071010
  Serious: Yes (Life-Threatening, Hospitalization, Other)
  Sender: FDA-Public Use
  Company Number: 156361ISR

PATIENT
  Age: 71 Year
  Sex: Male

DRUGS (2)
  1. SIMVASTATIN [Suspect]
     Dosage: SEE IMAGE
     Dates: start: 20000101
  2. ROSIGLITAZONE [Suspect]
     Dosage: SEE IMAGE
     Dates: start: 20050411

REACTIONS (7)
  - ACUTE CORONARY SYNDROME [None]
  - ATRIAL FIBRILLATION [None]
  - GENERAL PHYSICAL HEALTH DETERIORATION [None]
  - INTESTINAL ISCHAEMIA [None]
  - LEFT VENTRICULAR FAILURE [None]
  - PANCREATITIS ACUTE [None]
  - PULMONARY OEDEMA [None]
